FAERS Safety Report 24780298 (Version 1)
Quarter: 2024Q4

REPORT INFORMATION
  Report Type: Spontaneous
  Country: MY (occurrence: MY)
  Receive Date: 20241227
  Receipt Date: 20241227
  Transmission Date: 20250115
  Serious: Yes (Other)
  Sender: BOEHRINGER INGELHEIM
  Company Number: MY-BoehringerIngelheim-2024-BI-070074

PATIENT
  Age: 54 Year
  Sex: Male

DRUGS (1)
  1. DABIGATRAN [Suspect]
     Active Substance: DABIGATRAN
     Indication: Cardiac ventricular thrombosis

REACTIONS (8)
  - Necrotising fasciitis [Recovered/Resolved with Sequelae]
  - Enterococcal sepsis [Recovering/Resolving]
  - Multiple organ dysfunction syndrome [Recovering/Resolving]
  - Coagulopathy [Recovered/Resolved]
  - Ventricular hypokinesia [Recovering/Resolving]
  - Ejection fraction decreased [Recovering/Resolving]
  - Joint contracture [Recovering/Resolving]
  - Loss of personal independence in daily activities [Unknown]
